FAERS Safety Report 11076167 (Version 3)
Quarter: 2015Q2

REPORT INFORMATION
  Report Type: Spontaneous
  Country: US (occurrence: US)
  Receive Date: 20150429
  Receipt Date: 20150602
  Transmission Date: 20150821
  Serious: Yes (Other)
  Sender: FDA-Public Use
  Company Number: US-PFIZER INC-2015138806

PATIENT
  Sex: Male

DRUGS (1)
  1. GABAPENTIN. [Suspect]
     Active Substance: GABAPENTIN
     Dosage: 900 MG, 2X/DAY
     Dates: start: 2014

REACTIONS (6)
  - Drug ineffective [Unknown]
  - Seizure [Recovered/Resolved]
  - Condition aggravated [Unknown]
  - Peripheral swelling [Unknown]
  - Injury [Unknown]
  - Neuropathy peripheral [Unknown]
